FAERS Safety Report 4387075-3 (Version None)
Quarter: 2004Q2

REPORT INFORMATION
  Report Type: 
  Country: None (occurrence: None)
  Receive Date: 20040629
  Receipt Date: 20040629
  Transmission Date: 20050107
  Serious: Yes (Hospitalization)
  Sender: FDA-Public Use
  Company Number: None

PATIENT
  Age: 76 Year
  Sex: Female
  Weight: 43 kg

DRUGS (1)
  1. TAMOXIFEN 20 MG [Suspect]
     Indication: BREAST CANCER
     Dosage: 20 MG Q DAY PO
     Route: 048
     Dates: start: 19990301

REACTIONS (3)
  - CEREBROVASCULAR ACCIDENT [None]
  - DISEASE RECURRENCE [None]
  - TRANSIENT ISCHAEMIC ATTACK [None]
